FAERS Safety Report 23690916 (Version 1)
Quarter: 2024Q2

REPORT INFORMATION
  Report Type: Spontaneous
  Country: JP (occurrence: JP)
  Receive Date: 20240401
  Receipt Date: 20240401
  Transmission Date: 20240716
  Serious: Yes (Life-Threatening, Other)
  Sender: FDA-Public Use
  Company Number: JP-TAIHO-2024-001864

PATIENT
  Age: 62 Year
  Sex: Male
  Weight: 68.6 kg

DRUGS (19)
  1. ABRAXANE [Suspect]
     Active Substance: PACLITAXEL
     Indication: Lung neoplasm malignant
     Dosage: DAILY DOSE: 180 MILLIGRAM(S)
     Route: 041
     Dates: start: 20231024, end: 20231031
  2. ABRAXANE [Suspect]
     Active Substance: PACLITAXEL
     Dosage: DAILY DOSE: 150 MILLIGRAM(S)
     Route: 041
     Dates: start: 20231121, end: 20231205
  3. ABRAXANE [Suspect]
     Active Substance: PACLITAXEL
     Dosage: DAILY DOSE: 150 MILLIGRAM(S)
     Route: 041
     Dates: start: 20231214, end: 20231228
  4. ABRAXANE [Suspect]
     Active Substance: PACLITAXEL
     Dosage: DAILY DOSE: 150 MILLIGRAM(S)
     Route: 041
     Dates: start: 20240116, end: 20240130
  5. FOSNETUPITANT CHLORIDE HYDROCHLORIDE [Suspect]
     Active Substance: FOSNETUPITANT CHLORIDE HYDROCHLORIDE
     Indication: Prophylaxis of nausea and vomiting
     Dosage: THE 1ST DOSE
     Route: 041
     Dates: start: 20231024, end: 20231024
  6. FOSNETUPITANT CHLORIDE HYDROCHLORIDE [Suspect]
     Active Substance: FOSNETUPITANT CHLORIDE HYDROCHLORIDE
     Dosage: THE 2ND DOSE
     Route: 041
     Dates: start: 20231121, end: 20231121
  7. FOSNETUPITANT CHLORIDE HYDROCHLORIDE [Suspect]
     Active Substance: FOSNETUPITANT CHLORIDE HYDROCHLORIDE
     Dosage: THE 3RD DOSE
     Route: 041
     Dates: start: 20231214, end: 20231214
  8. FOSNETUPITANT CHLORIDE HYDROCHLORIDE [Suspect]
     Active Substance: FOSNETUPITANT CHLORIDE HYDROCHLORIDE
     Dosage: THE 4TH DOSE
     Route: 041
     Dates: start: 20240116
  9. CARBOPLATIN [Suspect]
     Active Substance: CARBOPLATIN
     Indication: Lung neoplasm malignant
     Dates: start: 20231024, end: 20231024
  10. CARBOPLATIN [Suspect]
     Active Substance: CARBOPLATIN
     Dates: start: 20231121, end: 20231121
  11. CARBOPLATIN [Suspect]
     Active Substance: CARBOPLATIN
     Dates: start: 20231214, end: 20231214
  12. CARBOPLATIN [Suspect]
     Active Substance: CARBOPLATIN
     Dates: start: 20240116, end: 20240116
  13. TECENTRIQ [Suspect]
     Active Substance: ATEZOLIZUMAB
     Indication: Lung neoplasm malignant
     Dates: start: 20231024, end: 20231024
  14. TECENTRIQ [Suspect]
     Active Substance: ATEZOLIZUMAB
     Dates: start: 20231121, end: 20231121
  15. TECENTRIQ [Suspect]
     Active Substance: ATEZOLIZUMAB
     Dates: start: 20231214, end: 20231214
  16. TECENTRIQ [Suspect]
     Active Substance: ATEZOLIZUMAB
     Dates: start: 20240116
  17. PALONOSETRON HYDROCHLORIDE [Concomitant]
     Active Substance: PALONOSETRON HYDROCHLORIDE
     Indication: Prophylaxis of nausea and vomiting
     Dosage: NI
  18. OLANZAPINE [Concomitant]
     Active Substance: OLANZAPINE
     Indication: Prophylaxis of nausea and vomiting
     Dosage: NI
  19. NAPROXEN [Concomitant]
     Active Substance: NAPROXEN
     Indication: Product used for unknown indication
     Dosage: NI

REACTIONS (2)
  - Anaemia [Recovered/Resolved]
  - Infusion related reaction [Recovered/Resolved]

NARRATIVE: CASE EVENT DATE: 20231104
